FAERS Safety Report 6728094-9 (Version None)
Quarter: 2010Q2

REPORT INFORMATION
  Report Type: 
  Country: None (occurrence: None)
  Receive Date: 20100517
  Receipt Date: 20100506
  Transmission Date: 20101027
  Serious: Yes (Hospitalization)
  Sender: FDA-Public Use
  Company Number: GXKR2010CN04023

PATIENT
  Age: 62 Year
  Sex: Male

DRUGS (5)
  1. ACETYLSALICYLIC ACID SRT [Suspect]
     Indication: CORONARY ARTERIAL STENT INSERTION
     Route: 065
  2. CEFUROXIME [Suspect]
     Dosage: UNK
     Route: 065
  3. PRAVASTATIN (NGX) [Suspect]
     Indication: CORONARY ARTERIAL STENT INSERTION
     Route: 065
  4. PLAVIX [Concomitant]
     Indication: CORONARY ARTERIAL STENT INSERTION
     Dosage: UNK
     Route: 065
  5. PLETAL [Concomitant]
     Route: 065

REACTIONS (8)
  - BLISTER [None]
  - CONJUNCTIVAL HYPERAEMIA [None]
  - ERYTHEMA [None]
  - MUCOSAL EROSION [None]
  - PYREXIA [None]
  - SKIN EXFOLIATION [None]
  - SKIN HAEMORRHAGE [None]
  - TOXIC EPIDERMAL NECROLYSIS [None]
